FAERS Safety Report 11230576 (Version 3)
Quarter: 2020Q4

REPORT INFORMATION
  Report Type: Spontaneous
  Country: US (occurrence: US)
  Receive Date: 20150701
  Receipt Date: 20201108
  Transmission Date: 20210113
  Serious: No
  Sender: FDA-Public Use
  Company Number: US-AMGEN-USASP2015063003

PATIENT
  Age: 63 Year
  Sex: Male

DRUGS (6)
  1. ENBREL [Suspect]
     Active Substance: ETANERCEPT
     Indication: RHEUMATOID ARTHRITIS
     Dosage: 50 MILLIGRAM, QWK
     Route: 058
     Dates: end: 201403
  2. LOPRESSOR [Concomitant]
     Active Substance: METOPROLOL TARTRATE
     Dosage: UNK
  3. ECOTRIN [Concomitant]
     Active Substance: ASPIRIN
     Dosage: UNK
  4. ENBREL [Suspect]
     Active Substance: ETANERCEPT
     Indication: PSORIATIC ARTHROPATHY
     Dosage: 50 MILLIGRAM, QWK
     Route: 058
     Dates: end: 2016
  5. LIPITOR [Concomitant]
     Active Substance: ATORVASTATIN CALCIUM
     Dosage: UNK
  6. OTEZLA [Concomitant]
     Active Substance: APREMILAST
     Dosage: UNK
     Dates: start: 202001

REACTIONS (5)
  - Diarrhoea [Unknown]
  - Asthenia [Unknown]
  - Influenza like illness [Unknown]
  - Infection [Unknown]
  - Paraesthesia [Unknown]
